FAERS Safety Report 18484005 (Version 1)
Quarter: 2020Q4

REPORT INFORMATION
  Report Type: Spontaneous
  Country: US (occurrence: US)
  Receive Date: 20201109
  Receipt Date: 20201109
  Transmission Date: 20210114
  Serious: Yes (Hospitalization, Other)
  Sender: FDA-Public Use
  Company Number: US-ROCHE-2707872

PATIENT
  Age: 45 Year
  Sex: Female
  Weight: 68.1 kg

DRUGS (10)
  1. CARBOPLATIN. [Concomitant]
     Active Substance: CARBOPLATIN
     Indication: INVASIVE DUCTAL BREAST CARCINOMA
     Dosage: ONGOING: NO
     Route: 042
     Dates: start: 20100810, end: 201108
  2. CYTOXAN [Suspect]
     Active Substance: CYCLOPHOSPHAMIDE
     Indication: INVASIVE DUCTAL BREAST CARCINOMA
     Route: 065
  3. ADRIAMYCIN [Suspect]
     Active Substance: DOXORUBICIN HYDROCHLORIDE
     Indication: INVASIVE DUCTAL BREAST CARCINOMA
     Route: 065
  4. HERCEPTIN [Suspect]
     Active Substance: TRASTUZUMAB
     Dosage: FOR A FULL YEAR ;ONGOING: YES
     Route: 042
     Dates: start: 20201014
  5. PERJETA [Suspect]
     Active Substance: PERTUZUMAB
     Indication: INVASIVE DUCTAL BREAST CARCINOMA
     Dosage: WITH CHEMOTHERAPY FOR 13 TREATMENTS ;ONGOING: NO
     Route: 042
     Dates: start: 20200220, end: 20200425
  6. TAXOTERE [Concomitant]
     Active Substance: DOCETAXEL
     Indication: INVASIVE DUCTAL BREAST CARCINOMA
     Dosage: ONGOING: NO
     Route: 042
     Dates: start: 20100810, end: 201108
  7. HERCEPTIN [Suspect]
     Active Substance: TRASTUZUMAB
     Indication: INVASIVE DUCTAL BREAST CARCINOMA
     Dosage: ONGOING: NO
     Route: 042
     Dates: start: 20100810, end: 201108
  8. HERCEPTIN [Suspect]
     Active Substance: TRASTUZUMAB
     Dosage: WITH CHEMOTHERAPY FOR 13 TREATMENTS ;ONGOING: NO
     Route: 042
     Dates: start: 20200220, end: 20200425
  9. TAXOL [Concomitant]
     Active Substance: PACLITAXEL
     Indication: INVASIVE DUCTAL BREAST CARCINOMA
     Dosage: 13 TREATMENTS ;ONGOING: NO
     Route: 042
     Dates: start: 20200220, end: 20200425
  10. PERJETA [Suspect]
     Active Substance: PERTUZUMAB
     Dosage: FOR A FULL YEAR ;ONGOING: YES
     Route: 042
     Dates: start: 20201014

REACTIONS (9)
  - Invasive ductal breast carcinoma [Not Recovered/Not Resolved]
  - Weight decreased [Recovered/Resolved]
  - Haematemesis [Recovered/Resolved]
  - Asthenia [Recovered/Resolved]
  - Pneumonia [Not Recovered/Not Resolved]
  - Visual impairment [Recovered/Resolved]
  - Loss of consciousness [Not Recovered/Not Resolved]
  - Dizziness [Recovered/Resolved]
  - Mental impairment [Recovered/Resolved]

NARRATIVE: CASE EVENT DATE: 20200202
